FAERS Safety Report 13013164 (Version 1)
Quarter: 2016Q4

REPORT INFORMATION
  Report Type: Spontaneous
  Country: US (occurrence: US)
  Receive Date: 20161209
  Receipt Date: 20161209
  Transmission Date: 20170207
  Serious: No
  Sender: FDA-Public Use
  Company Number: US-009507513-1611USA006611

PATIENT
  Age: 28 Year
  Sex: Female
  Weight: 81.63 kg

DRUGS (6)
  1. RANITIDINE. [Concomitant]
     Active Substance: RANITIDINE
  2. OXYBUTYNIN [Concomitant]
     Active Substance: OXYBUTYNIN
  3. CYCLOBENZAPR [Concomitant]
  4. NEXPLANON [Suspect]
     Active Substance: ETONOGESTREL
     Indication: MENSTRUAL CYCLE MANAGEMENT
     Dosage: EVERY 3 YEARS, LEFT ARM- IMPLANT
     Route: 059
     Dates: start: 20150414
  5. PHENTERMINE. [Concomitant]
     Active Substance: PHENTERMINE
  6. MELOXICAM. [Concomitant]
     Active Substance: MELOXICAM
     Route: 048

REACTIONS (3)
  - Menorrhagia [Unknown]
  - Amenorrhoea [Recovered/Resolved]
  - Product use issue [Unknown]

NARRATIVE: CASE EVENT DATE: 20150414
